FAERS Safety Report 9553407 (Version 1)
Quarter: 2013Q3

REPORT INFORMATION
  Report Type: Spontaneous
  Country: US (occurrence: None)
  Receive Date: 20130724
  Receipt Date: 20130724
  Transmission Date: 20140515
  Serious: Yes (Disabling, Other)
  Sender: FDA-Public Use
  Company Number: PHEH2012US010304

PATIENT
  Age: 56 Year
  Sex: Male
  Weight: 73.5 kg

DRUGS (7)
  1. RECLAST [Suspect]
     Dates: start: 20120509
  2. ENALAPRIL (ENALAPRIL) [Concomitant]
  3. METFORMIN (METFORMIN) [Concomitant]
  4. HYDRICHLOROTHIAZIDE (HYDROCHLOROTHIAZIDE) [Concomitant]
  5. HUMALOG (INSULIN LISPRO) [Concomitant]
  6. LANFUS [Concomitant]
  7. LOVASTATIN (LOVASTATIN) [Concomitant]

REACTIONS (11)
  - Bone pain [None]
  - Pyrexia [None]
  - Myalgia [None]
  - Muscular weakness [None]
  - Glomerular filtration rate decreased [None]
  - Alanine aminotransferase increased [None]
  - Aldolase increased [None]
  - Aspartate aminotransferase increased [None]
  - Pain in extremity [None]
  - Gait disturbance [None]
  - Pain [None]
